FAERS Safety Report 5258892-2 (Version None)
Quarter: 2007Q1

REPORT INFORMATION
  Report Type: 
  Country: None (occurrence: None)
  Receive Date: 20070308
  Receipt Date: 20070227
  Transmission Date: 20070707
  Serious: Yes (Hospitalization)
  Sender: FDA-Public Use
  Company Number: US-BRISTOL-MYERS SQUIBB COMPANY-13694617

PATIENT
  Age: 31 Year
  Sex: Male

DRUGS (8)
  1. BLINDED: BELATACEPT [Suspect]
     Indication: RENAL TRANSPLANT
     Route: 042
     Dates: start: 20061208
  2. CELLCEPT [Suspect]
     Route: 048
     Dates: start: 20061208, end: 20070219
  3. PREDNISONE [Concomitant]
     Route: 048
     Dates: start: 20061210
  4. ARANESP [Concomitant]
     Route: 058
     Dates: start: 20070111, end: 20070212
  5. PROCARDIA XL [Concomitant]
     Route: 048
     Dates: start: 20070123
  6. COLACE [Concomitant]
     Route: 048
     Dates: start: 20061214
  7. MULTI-VITAMIN [Concomitant]
     Route: 048
     Dates: start: 20061214
  8. XALATAN [Concomitant]
     Route: 048
     Dates: start: 20061214

REACTIONS (1)
  - CYTOMEGALOVIRUS VIRAEMIA [None]
